FAERS Safety Report 5709474-7 (Version None)
Quarter: 2008Q2

REPORT INFORMATION
  Report Type: 
  Country: None (occurrence: None)
  Receive Date: 20080418
  Receipt Date: 20080409
  Transmission Date: 20081010
  Serious: Yes (Hospitalization)
  Sender: FDA-Public Use
  Company Number: FR-BRISTOL-MYERS SQUIBB COMPANY-14154488

PATIENT
  Age: 76 Year
  Sex: Male

DRUGS (18)
  1. CYCLOPHOSPHAMIDE [Suspect]
     Indication: LYMPHOMA
     Dosage: RECEIVED 1ST CYCLE ON 10DEC07, 2ND ON 03JAN08, 3RD ON 24JAN08, 4TH ON 20FEB08
     Route: 042
     Dates: start: 20080220, end: 20080220
  2. UROMITEXAN [Suspect]
     Indication: LYMPHOMA
     Dosage: RECEIVED 1ST CYCLE ON 10DEC07, 2ND ON 03JAN08, 3RD ON 24JAN08, 4TH ON 20FEB08
     Route: 065
     Dates: start: 20080220, end: 20080220
  3. DOXORUBICIN HCL [Suspect]
     Indication: LYMPHOMA
     Dosage: RECEIVED 1ST CYCLE ON 10DEC07, 2ND ON 03JAN08, 3RD ON 24JAN08, 4TH ON 20FEB08
     Route: 042
     Dates: start: 20080220, end: 20080220
  4. VINCRISTINE [Suspect]
     Indication: LYMPHOMA
     Dosage: RECEIVED 1ST CYCLE ON 10DEC07, 2ND ON 03JAN08, 3RD ON 24JAN08, 4TH ON 20FEB08
     Route: 065
     Dates: start: 20080220, end: 20080220
  5. SOLU-MEDROL [Suspect]
     Indication: LYMPHOMA
     Dosage: RECEIVED 1ST CYCLE ON 10DEC07, 2ND ON 03JAN08, 3RD ON 24JAN08, 4TH ON 20FEB08
     Route: 065
     Dates: start: 20080220, end: 20080220
  6. CARDIOXANE [Suspect]
     Indication: LYMPHOMA
     Dosage: RECEIVED 1ST CYCLE ON 10DEC07, 2ND ON 03JAN08, 3RD ON 24JAN08, 4TH ON 20FEB08
     Route: 065
     Dates: start: 20080220, end: 20080220
  7. ZOPHREN [Suspect]
     Indication: LYMPHOMA
     Dosage: RECEIVED 1ST CYCLE ON 10DEC07, 2ND ON 03JAN08, 3RD ON 24JAN08, 4TH ON 20FEB08
     Route: 065
     Dates: start: 20080220, end: 20080220
  8. GRANOCYTE [Suspect]
     Indication: LYMPHOMA
     Dosage: ALL CYCLE AFTER 5 TO 10 DAYS AFTER THE ADMINISTRATION OF CHOP REGIMEN.
     Route: 065
     Dates: start: 20080229, end: 20080229
  9. PHYSIOTENS [Concomitant]
     Dosage: IN THE MORNING
  10. IRBESARTAN [Concomitant]
  11. LASILIX [Concomitant]
  12. IPERTEN [Concomitant]
  13. PRAVADUAL [Concomitant]
  14. OMEPRAZOLE [Concomitant]
  15. INTETRIX [Concomitant]
  16. SEROPLEX [Concomitant]
  17. CORTANCYL [Concomitant]
  18. IMOVANE [Concomitant]

REACTIONS (1)
  - COLITIS ISCHAEMIC [None]
